FAERS Safety Report 5934279-1 (Version None)
Quarter: 2008Q4

REPORT INFORMATION
  Report Type: 
  Country: None (occurrence: None)
  Receive Date: 20081029
  Receipt Date: 20081016
  Transmission Date: 20090506
  Serious: Yes (Other)
  Sender: FDA-Public Use
  Company Number: PHHY2008FR24951

PATIENT
  Sex: Female

DRUGS (3)
  1. TAREG [Suspect]
     Indication: HYPERTENSION
     Dosage: 80 MG, QD
     Route: 048
  2. VENTOLIN [Concomitant]
  3. BECOTIDE [Concomitant]

REACTIONS (3)
  - AORTIC CALCIFICATION [None]
  - CAROTID ARTERY STENOSIS [None]
  - MUSCULOSKELETAL DISCOMFORT [None]
